FAERS Safety Report 14128890 (Version 2)
Quarter: 2017Q4

REPORT INFORMATION
  Report Type: Spontaneous
  Country: JP (occurrence: JP)
  Receive Date: 20171026
  Receipt Date: 20171106
  Transmission Date: 20180321
  Serious: Yes (Other)
  Sender: FDA-Public Use
  Company Number: JP-GLAXOSMITHKLINE-JP2017JPN162466

PATIENT
  Age: 70 Year
  Sex: Male

DRUGS (1)
  1. REQUIP [Suspect]
     Active Substance: ROPINIROLE HYDROCHLORIDE
     Indication: PARKINSON^S DISEASE
     Dosage: UNK UNK, QD
     Route: 048

REACTIONS (5)
  - Dysphagia [Unknown]
  - Salivary hypersecretion [Unknown]
  - Speech disorder [Unknown]
  - Gait disturbance [Unknown]
  - Parkinson^s disease [Unknown]
